FAERS Safety Report 14804295 (Version 1)
Quarter: 2018Q2

REPORT INFORMATION
  Report Type: Spontaneous
  Country: US (occurrence: US)
  Receive Date: 20180425
  Receipt Date: 20180425
  Transmission Date: 20180711
  Serious: No
  Sender: FDA-Public Use
  Company Number: US-TEVA-2018-US-875151

PATIENT
  Sex: Male

DRUGS (1)
  1. TESTOSTERONE. [Suspect]
     Active Substance: TESTOSTERONE
     Dosage: 30 MG/1.5 ML
     Route: 061

REACTIONS (4)
  - Drug effect incomplete [Unknown]
  - Drug intolerance [Unknown]
  - Product substitution issue [Unknown]
  - Device difficult to use [Unknown]
